FAERS Safety Report 9617606 (Version 1)
Quarter: 2013Q4

REPORT INFORMATION
  Report Type: Spontaneous
  Country: US (occurrence: US)
  Receive Date: 20131011
  Receipt Date: 20131011
  Transmission Date: 20140711
  Serious: No
  Sender: FDA-Public Use
  Company Number: US-009507513-1310USA003924

PATIENT
  Age: 43 Year
  Sex: Male

DRUGS (1)
  1. ASMANEX TWISTHALER [Suspect]
     Indication: ASTHMA
     Dosage: 220 MICROGRAM, 2 PUFFS EVERY EVENING
     Route: 055
     Dates: start: 20130905

REACTIONS (3)
  - Chest pain [Recovered/Resolved]
  - Drug dose omission [Unknown]
  - Product quality issue [Unknown]
